FAERS Safety Report 8041418-8 (Version None)
Quarter: 2012Q1

REPORT INFORMATION
  Report Type: 
  Country: None (occurrence: None)
  Receive Date: 20120112
  Receipt Date: 20120105
  Transmission Date: 20120608
  Serious: Yes (Hospitalization)
  Sender: FDA-Public Use
  Company Number: US-BAYER-2011-036563

PATIENT
  Age: 35 Year
  Sex: Female
  Weight: 86.621 kg

DRUGS (8)
  1. YASMIN [Suspect]
     Indication: CONTRACEPTION
     Dosage: UNK
     Dates: start: 20060303, end: 20070228
  2. CITALOPRAM [Concomitant]
     Indication: ANXIETY
  3. CITALOPRAM [Concomitant]
     Indication: MIGRAINE
     Dosage: 20 MG, UNK
     Route: 048
     Dates: start: 20040101
  4. CITALOPRAM [Concomitant]
     Indication: DIZZINESS
  5. CLONAZEPAM [Concomitant]
     Indication: ANXIETY
  6. CLONAZEPAM [Concomitant]
     Indication: MIGRAINE
     Dosage: 0.5 MG, UNK
     Route: 048
     Dates: start: 20050101
  7. CLONAZEPAM [Concomitant]
     Indication: DIZZINESS
  8. YASMIN [Suspect]
     Indication: POLYURIA

REACTIONS (10)
  - BUNDLE BRANCH BLOCK [None]
  - GENERAL PHYSICAL HEALTH DETERIORATION [None]
  - EMOTIONAL DISTRESS [None]
  - PULMONARY INFARCTION [None]
  - MYOCARDIAL STRAIN [None]
  - CHEST PAIN [None]
  - PULMONARY EMBOLISM [None]
  - PAIN [None]
  - ANXIETY [None]
  - DYSPNOEA [None]
